FAERS Safety Report 16132303 (Version 1)
Quarter: 2019Q1

REPORT INFORMATION
  Report Type: Report from Study
  Country: GB (occurrence: GB)
  Receive Date: 20190329
  Receipt Date: 20190329
  Transmission Date: 20190418
  Serious: Yes (Other)
  Sender: FDA-Public Use
  Company Number: GB-BRISTOL-MYERS SQUIBB COMPANY-BMS-2017-042656

PATIENT
  Sex: Female

DRUGS (1)
  1. ABATACEPT [Suspect]
     Active Substance: ABATACEPT
     Indication: RHEUMATOID ARTHRITIS
     Dosage: 125 MG, UNK
     Route: 058
     Dates: start: 20170223

REACTIONS (6)
  - Mouth ulceration [Unknown]
  - Tonsillitis [Unknown]
  - Arthropathy [Unknown]
  - Nasopharyngitis [Unknown]
  - Adverse event [Unknown]
  - Cough [Unknown]
